FAERS Safety Report 6072220-4 (Version None)
Quarter: 2009Q1

REPORT INFORMATION
  Report Type: 
  Country: None (occurrence: None)
  Receive Date: 20090210
  Receipt Date: 20090127
  Transmission Date: 20090719
  Serious: Yes (Hospitalization)
  Sender: FDA-Public Use
  Company Number: DE-GENENTECH-276317

PATIENT
  Sex: Male

DRUGS (4)
  1. BEVACIZUMAB [Suspect]
     Indication: COLON CANCER METASTATIC
     Dosage: 340 MG, UNK
     Route: 042
  2. IRINOTECAN HCL [Concomitant]
     Indication: COLON CANCER METASTATIC
     Dosage: 240 MG, UNK
     Route: 042
  3. FLUOROURACIL [Concomitant]
     Indication: COLON CANCER METASTATIC
     Dosage: 1750 MG, UNK
     Route: 042
  4. LEUCOVORIN CALCIUM [Concomitant]
     Indication: COLON CANCER METASTATIC
     Dosage: 350 MG, UNK
     Route: 042

REACTIONS (2)
  - HYPERTENSION [None]
  - PYREXIA [None]
